FAERS Safety Report 9276030 (Version 1)
Quarter: 2012Q4

REPORT INFORMATION
  Report Type: Spontaneous
  Country: FR (occurrence: None)
  Receive Date: 20121109
  Receipt Date: 20121109
  Transmission Date: 20130627
  Serious: Yes (Life-Threatening, Hospitalization)
  Sender: FDA-Public Use
  Company Number: 2012S1000502

PATIENT
  Age: 57 Year
  Sex: Male

DRUGS (9)
  1. CUBICIN [Suspect]
     Indication: ENDOCARDITIS STAPHYLOCOCCAL
     Route: 042
     Dates: start: 20120323, end: 20120404
  2. CRESTOR [Suspect]
     Route: 048
     Dates: end: 20120404
  3. INEXIUM [Concomitant]
  4. CARDENSIEL [Concomitant]
  5. KARDEGIC [Concomitant]
  6. STILNOX [Concomitant]
  7. DUROGESIC [Concomitant]
  8. ZYVOXID [Concomitant]
  9. GENTAMYCIN [Concomitant]

REACTIONS (2)
  - Rhabdomyolysis [None]
  - Endocarditis staphylococcal [None]
